FAERS Safety Report 9833854 (Version 1)
Quarter: 2014Q1

REPORT INFORMATION
  Report Type: Spontaneous
  Country: US (occurrence: US)
  Receive Date: 20140122
  Receipt Date: 20140122
  Transmission Date: 20141002
  Serious: No
  Sender: FDA-Public Use
  Company Number: US-BIOGENIDEC-2014BI005148

PATIENT
  Sex: Female

DRUGS (15)
  1. TECFIDERA [Suspect]
     Indication: MULTIPLE SCLEROSIS
     Route: 048
     Dates: start: 201310
  2. SAVELLA [Concomitant]
  3. LASIX [Concomitant]
  4. ZEBETA [Concomitant]
  5. EXFORGE [Concomitant]
  6. MECLIZINE HCL [Concomitant]
  7. SERTRALINE HCL [Concomitant]
  8. ACIPHEX [Concomitant]
  9. RESTORIL [Concomitant]
  10. ASPIRIN EC [Concomitant]
  11. NUCYNTA ER [Concomitant]
  12. PLAVIX [Concomitant]
  13. TOVIAZ [Concomitant]
  14. ZANAFLEX [Concomitant]
  15. ALPRAZOLAM [Concomitant]

REACTIONS (2)
  - Arthritis [Unknown]
  - Depression [Unknown]
